FAERS Safety Report 7609511-9 (Version None)
Quarter: 2011Q3

REPORT INFORMATION
  Report Type: 
  Country: None (occurrence: None)
  Receive Date: 20110714
  Receipt Date: 20110707
  Transmission Date: 20111222
  Serious: Yes (Hospitalization)
  Sender: FDA-Public Use
  Company Number: US-US-EMD SERONO, INC.-7067000

PATIENT
  Sex: Female
  Weight: 75 kg

DRUGS (2)
  1. REBIF [Suspect]
     Indication: MULTIPLE SCLEROSIS
     Route: 058
     Dates: start: 20110518
  2. TYLENOL-500 [Concomitant]

REACTIONS (2)
  - TINNITUS [None]
  - STAPHYLOCOCCAL INFECTION [None]
